FAERS Safety Report 18035693 (Version 1)
Quarter: 2020Q3

REPORT INFORMATION
  Report Type: Spontaneous
  Country: US (occurrence: US)
  Receive Date: 20200715
  Receipt Date: 20200715
  Transmission Date: 20201103
  Serious: No
  Sender: FDA-Public Use
  Company Number: None

PATIENT

DRUGS (1)
  1. VALSARTAN. [Suspect]
     Active Substance: VALSARTAN
     Route: 048

REACTIONS (14)
  - Therapeutic response changed [None]
  - Manufacturing facilities issue [None]
  - Fatigue [None]
  - Drug ineffective [None]
  - Blood pressure increased [None]
  - Adulterated product [None]
  - Bradycardia [None]
  - Myalgia [None]
  - Product substitution issue [None]
  - Product physical consistency issue [None]
  - Headache [None]
  - Cognitive disorder [None]
  - Product packaging issue [None]
  - Manufacturing process control procedure issue [None]
